FAERS Safety Report 24596244 (Version 2)
Quarter: 2024Q4

REPORT INFORMATION
  Report Type: Spontaneous
  Country: US (occurrence: US)
  Receive Date: 20241110
  Receipt Date: 20241225
  Transmission Date: 20250115
  Serious: No
  Sender: SANDOZ
  Company Number: US-SANDOZ-SDZ2024US093524

PATIENT
  Sex: Female

DRUGS (1)
  1. KETOCONAZOLE [Suspect]
     Active Substance: KETOCONAZOLE
     Indication: Product used for unknown indication
     Dosage: UNK, BID
     Route: 065

REACTIONS (5)
  - Burning sensation [Unknown]
  - Expired product administered [Unknown]
  - Product storage error [Unknown]
  - Poor quality product administered [Unknown]
  - Product quality issue [Unknown]
